FAERS Safety Report 7901764-2 (Version None)
Quarter: 2011Q4

REPORT INFORMATION
  Report Type: 
  Country: None (occurrence: None)
  Receive Date: 20111108
  Receipt Date: 20111026
  Transmission Date: 20120403
  Serious: Yes (Other)
  Sender: FDA-Public Use
  Company Number: PHFR2011GB02915

PATIENT
  Sex: Male
  Weight: 90.46 kg

DRUGS (9)
  1. CLOZARIL [Suspect]
     Dosage: 200MG
  2. AMISULPRIDE [Suspect]
     Indication: SCHIZOPHRENIA
     Dosage: 200 MG, BID
  3. CITALOPRAM HYDROBROMIDE [Concomitant]
     Indication: DEPRESSED MOOD
     Dosage: 20 MG, QD
  4. GLICLAZIDE [Concomitant]
     Indication: DIABETES MELLITUS
     Dosage: 30 MG/DAY
     Route: 048
  5. ASPIRIN [Concomitant]
     Indication: CORONARY ARTERY DISEASE
     Dosage: 75 MG/DAY
     Route: 048
  6. CLOZARIL [Suspect]
     Dosage: 250 MG, QD
     Route: 048
     Dates: start: 20110303
  7. NEBIVOLOL HCL [Concomitant]
     Dosage: 10 MG, UNK
     Route: 048
  8. CLOZARIL [Suspect]
     Indication: SCHIZOPHRENIA
     Dosage: 200 MG, QD
     Route: 048
     Dates: start: 20100617
  9. LISINOPRIL [Concomitant]
     Indication: HYPERTENSION
     Dosage: 5 MG/DAY
     Route: 048

REACTIONS (14)
  - MOVEMENT DISORDER [None]
  - NERVOUSNESS [None]
  - ANTIPSYCHOTIC DRUG LEVEL BELOW THERAPEUTIC [None]
  - CONFUSIONAL STATE [None]
  - MALAISE [None]
  - HYPERSOMNIA [None]
  - DEPRESSED MOOD [None]
  - ASTHENIA [None]
  - HAEMOGLOBIN DECREASED [None]
  - HYPOAESTHESIA [None]
  - DISTURBANCE IN ATTENTION [None]
  - DYSPNOEA [None]
  - MENTAL IMPAIRMENT [None]
  - ANXIETY [None]
